FAERS Safety Report 5495101-3 (Version None)
Quarter: 2007Q4

REPORT INFORMATION
  Report Type: 
  Country: None (occurrence: None)
  Receive Date: 20071024
  Receipt Date: 20071022
  Transmission Date: 20080405
  Serious: Yes (Hospitalization)
  Sender: FDA-Public Use
  Company Number: JP-BOEHRINGER INGELHEIM PHARMACEUTICALS, INC.-2007-BP-21931NB

PATIENT
  Sex: Female
  Weight: 54 kg

DRUGS (10)
  1. MICARDIS [Suspect]
     Indication: HYPERTENSION
     Route: 048
     Dates: start: 20060801, end: 20070817
  2. AMARYL [Concomitant]
     Route: 048
  3. ADALAT [Concomitant]
     Indication: HYPERTENSION
     Route: 048
  4. GEFARINATE [Concomitant]
     Indication: PROPHYLAXIS
     Route: 048
  5. ASPIRIN [Concomitant]
     Indication: PROPHYLAXIS
     Route: 048
  6. LIVALO [Concomitant]
     Route: 048
  7. D-ALFA [Concomitant]
     Route: 048
  8. ASPARA K [Concomitant]
     Indication: PROPHYLAXIS
     Route: 048
  9. MAGNESIUM OXIDE [Concomitant]
     Indication: PROPHYLAXIS
     Route: 048
  10. ARICEPT D [Concomitant]
     Indication: PROPHYLAXIS
     Route: 048

REACTIONS (1)
  - CEREBRAL INFARCTION [None]
